FAERS Safety Report 23942230 (Version 1)
Quarter: 2024Q2

REPORT INFORMATION
  Report Type: Spontaneous
  Country: CN (occurrence: CN)
  Receive Date: 20240605
  Receipt Date: 20240605
  Transmission Date: 20240715
  Serious: Yes (Other)
  Sender: FDA-Public Use
  Company Number: CN-BAYER-2024A080579

PATIENT
  Age: 64 Year
  Sex: Male
  Weight: 60 kg

DRUGS (2)
  1. STIVARGA [Suspect]
     Active Substance: REGORAFENIB\REGORAFENIB MONOHYDRATE
     Indication: Rectal cancer
     Dosage: 80 MG, QD
     Route: 048
     Dates: start: 20240427, end: 20240517
  2. RALTITREXED [Suspect]
     Active Substance: RALTITREXED
     Indication: Colorectal cancer
     Dosage: 4 MG, ONCE, WITH SODIUM CHLORIDE INJECTION 250ML
     Route: 041
     Dates: start: 20240427, end: 20240427

REACTIONS (2)
  - Myelosuppression [Recovered/Resolved]
  - Off label use [None]

NARRATIVE: CASE EVENT DATE: 20240427
